FAERS Safety Report 5779501-X (Version None)
Quarter: 2008Q2

REPORT INFORMATION
  Report Type: 
  Country: None (occurrence: None)
  Receive Date: 20080619
  Receipt Date: 20070912
  Transmission Date: 20081010
  Serious: No
  Sender: FDA-Public Use
  Company Number: US-ASTRAZENECA-2007UW21605

PATIENT
  Age: 83 Year
  Sex: Female
  Weight: 67.1 kg

DRUGS (9)
  1. ATACAND [Suspect]
     Indication: HYPERTENSION
     Route: 048
  2. ATACAND [Suspect]
     Route: 048
  3. OSTEOPOROSIS VITAMIN D [Concomitant]
  4. TYLENOL [Concomitant]
  5. ATENOLOL [Concomitant]
     Route: 048
  6. FUROSEMIDE [Concomitant]
  7. POTASSIUM CHLORIDE [Concomitant]
  8. PROZAC [Concomitant]
  9. ATIVAN [Concomitant]

REACTIONS (2)
  - BALANCE DISORDER [None]
  - MYALGIA [None]
